FAERS Safety Report 6965185-1 (Version None)
Quarter: 2010Q3

REPORT INFORMATION
  Report Type: 
  Country: None (occurrence: None)
  Receive Date: 20100903
  Receipt Date: 20100827
  Transmission Date: 20110219
  Serious: Yes (Other)
  Sender: FDA-Public Use
  Company Number: US-PFIZER INC-2010108035

PATIENT
  Sex: Male

DRUGS (3)
  1. VIAGRA [Suspect]
     Dosage: UNK
     Route: 048
  2. LIPITOR [Suspect]
     Dosage: UNK, AS NEEDED ABOUT TWICE A WEEK
  3. CIALIS [Suspect]
     Dosage: UNK

REACTIONS (1)
  - CEREBROVASCULAR ACCIDENT [None]
